FAERS Safety Report 4718341-7 (Version None)
Quarter: 2005Q3

REPORT INFORMATION
  Report Type: 
  Country: None (occurrence: None)
  Receive Date: 20050718
  Receipt Date: 20041119
  Transmission Date: 20060218
  Serious: Yes (Other)
  Sender: FDA-Public Use
  Company Number: 240647

PATIENT
  Age: 56 Year
  Sex: Female

DRUGS (5)
  1. ACTIVELLA (NORESTHISTERONE ACETATE, ESTRADIOL HEMIHYDRATE) FILM-COATED [Suspect]
     Indication: HORMONE REPLACEMENT THERAPY
     Dates: start: 20010906, end: 20030101
  2. MEDROXYPROGESTERONE ACETATE [Concomitant]
  3. PROMETRIUM [Concomitant]
  4. ESTRATAB [Concomitant]
  5. ORTHO-PREFEST (ESTRADIOL, NOREGESTIMATE) [Concomitant]

REACTIONS (1)
  - BREAST CANCER [None]
